FAERS Safety Report 9205327 (Version 1)
Quarter: 2013Q2

REPORT INFORMATION
  Report Type: Spontaneous
  Country: US (occurrence: US)
  Receive Date: 20130402
  Receipt Date: 20130402
  Transmission Date: 20140414
  Serious: No
  Sender: FDA-Public Use
  Company Number: US-B.I. PHARMACEUTICALS,INC./RIDGEFIELD-2013-BI-08654BP

PATIENT
  Age: 75 Year
  Sex: Female
  Weight: 70 kg

DRUGS (2)
  1. COMBIVENT [Suspect]
     Indication: BRONCHITIS CHRONIC
     Route: 055
     Dates: start: 20130309
  2. COMBIVENT [Suspect]
     Route: 055
     Dates: start: 201303, end: 201303

REACTIONS (3)
  - Ocular hyperaemia [Unknown]
  - Local swelling [Unknown]
  - Swollen tongue [Unknown]
